FAERS Safety Report 6463154-1 (Version None)
Quarter: 2009Q4

REPORT INFORMATION
  Report Type: 
  Country: None (occurrence: None)
  Receive Date: 20091123
  Receipt Date: 20091110
  Transmission Date: 20100525
  Serious: Yes (Hospitalization)
  Sender: FDA-Public Use
  Company Number: 2009-04687

PATIENT
  Age: 65 Year
  Sex: Male
  Weight: 63.5 kg

DRUGS (4)
  1. VELCADE [Suspect]
     Indication: MULTIPLE MYELOMA
     Dosage: 1.0 MG/M2, UNK, INTRAVENOUS
     Route: 042
     Dates: start: 20090415, end: 20091009
  2. DEXAMETHASONE [Suspect]
     Indication: MULTIPLE MYELOMA
     Dosage: 40 MG/M2, UNK, INTRAVENOUS
     Route: 042
     Dates: start: 20090415, end: 20091009
  3. DOXIL [Suspect]
     Indication: MULTIPLE MYELOMA
     Dosage: 50 MG/M2, UNK, INTRAVENOUS
     Route: 042
     Dates: start: 20090415, end: 20091009
  4. AMITRIPTYLINE HYDROCHLORIDE [Concomitant]

REACTIONS (12)
  - ASTHENIA [None]
  - BLOOD SODIUM DECREASED [None]
  - CONJUNCTIVAL PALLOR [None]
  - DECREASED APPETITE [None]
  - DIARRHOEA [None]
  - DYSPEPSIA [None]
  - HAEMOGLOBIN DECREASED [None]
  - HEART RATE INCREASED [None]
  - HICCUPS [None]
  - PCO2 DECREASED [None]
  - PLATELET COUNT DECREASED [None]
  - WEIGHT DECREASED [None]
